FAERS Safety Report 21570594 (Version 5)
Quarter: 2023Q1

REPORT INFORMATION
  Report Type: Report from Study
  Country: US (occurrence: US)
  Receive Date: 20221109
  Receipt Date: 20230213
  Transmission Date: 20230418
  Serious: Yes (Other)
  Sender: FDA-Public Use
  Company Number: US-002147023-NVSC2022US248089

PATIENT
  Age: 79 Year
  Sex: Female
  Weight: 71.8 kg

DRUGS (1)
  1. PIQRAY [Suspect]
     Active Substance: ALPELISIB
     Indication: Breast cancer metastatic
     Dosage: 300 MG, QD
     Route: 048
     Dates: start: 20221019

REACTIONS (10)
  - Cardiac failure congestive [Unknown]
  - Pulmonary oedema [Unknown]
  - Fall [Recovered/Resolved]
  - Fall [Unknown]
  - Nausea [Unknown]
  - Decreased appetite [Unknown]
  - Blood potassium decreased [Unknown]
  - Diarrhoea [Unknown]
  - Fatigue [Unknown]
  - Balance disorder [Unknown]

NARRATIVE: CASE EVENT DATE: 20221027
